FAERS Safety Report 24695754 (Version 1)
Quarter: 2024Q4

REPORT INFORMATION
  Report Type: Spontaneous
  Country: CH (occurrence: CH)
  Receive Date: 20241204
  Receipt Date: 20241204
  Transmission Date: 20250115
  Serious: Yes (Other)
  Sender: GLAND PHARMA LTD
  Company Number: CH-GLANDPHARMA-CH-2024GLNLIT01112

PATIENT
  Age: 3 Year
  Sex: Male

DRUGS (1)
  1. HEPARIN SODIUM [Suspect]
     Active Substance: HEPARIN SODIUM
     Indication: Anticoagulant therapy
     Dosage: 0.3-0.7IU/ML
     Route: 065

REACTIONS (2)
  - Prosthetic cardiac valve thrombosis [Recovered/Resolved]
  - Heparin-induced thrombocytopenia [Recovered/Resolved]
